FAERS Safety Report 5291236-9 (Version None)
Quarter: 2007Q2

REPORT INFORMATION
  Report Type: 
  Country: None (occurrence: None)
  Receive Date: 20070409
  Receipt Date: 20070330
  Transmission Date: 20071010
  Serious: No
  Sender: FDA-Public Use
  Company Number: NL-PFIZER INC-2007008021

PATIENT
  Sex: Male
  Weight: 78 kg

DRUGS (5)
  1. VIAGRA [Suspect]
     Indication: ERECTILE DYSFUNCTION
     Route: 048
  2. LIPITOR [Concomitant]
     Route: 048
  3. ACETYLSALICYLIC ACID SRT [Concomitant]
     Route: 048
  4. PERINDOPRIL ERBUMINE [Concomitant]
  5. NAPROXEN [Concomitant]
     Route: 048

REACTIONS (1)
  - NO ADVERSE EFFECT [None]
